FAERS Safety Report 14882289 (Version 3)
Quarter: 2019Q1

REPORT INFORMATION
  Report Type: Spontaneous
  Country: AU (occurrence: AU)
  Receive Date: 20180511
  Receipt Date: 20190208
  Transmission Date: 20190417
  Serious: Yes (Hospitalization)
  Sender: FDA-Public Use
  Company Number: AU-OTSUKA-2018_012053

PATIENT
  Age: 32 Year
  Sex: Female

DRUGS (4)
  1. FLUPENTIXOL DECANOATE [Suspect]
     Active Substance: FLUPENTIXOL DECANOATE
     Indication: PRODUCT USED FOR UNKNOWN INDICATION
     Dosage: 60 MG, BIW
     Route: 030
  2. CLOZARIL [Suspect]
     Active Substance: CLOZAPINE
     Indication: SCHIZOPHRENIA
     Dosage: 150 MG, UNK
     Route: 065
     Dates: start: 200907, end: 201211
  3. ABILIFY MAINTENA [Suspect]
     Active Substance: ARIPIPRAZOLE
     Indication: PRODUCT USED FOR UNKNOWN INDICATION
     Dosage: 15 MG, UNK
     Route: 065
  4. AMISULPRIDE [Suspect]
     Active Substance: AMISULPRIDE
     Indication: PRODUCT USED FOR UNKNOWN INDICATION
     Dosage: 600 MG, BID
     Route: 048

REACTIONS (21)
  - Blood bicarbonate decreased [Recovered/Resolved]
  - Alanine aminotransferase increased [Recovered/Resolved]
  - Blood glucose increased [Recovered/Resolved]
  - Troponin increased [Not Recovered/Not Resolved]
  - White blood cell count decreased [Recovered/Resolved]
  - Electrocardiogram QT prolonged [Unknown]
  - Glomerular filtration rate increased [Recovered/Resolved]
  - Blood urea decreased [Unknown]
  - Hyperprolactinaemia [Unknown]
  - Neutrophil count decreased [Recovered/Resolved]
  - Amnesia [Recovering/Resolving]
  - Protein total increased [Recovered/Resolved]
  - Chest pain [Unknown]
  - Blood magnesium increased [Recovering/Resolving]
  - Amenorrhoea [Unknown]
  - Hospitalisation [Unknown]
  - Blood triglycerides increased [Recovered/Resolved]
  - Blood bilirubin increased [Recovered/Resolved]
  - Myocarditis [Unknown]
  - Tardive dyskinesia [Unknown]
  - Anion gap increased [Not Recovered/Not Resolved]

NARRATIVE: CASE EVENT DATE: 201211
